FAERS Safety Report 11381946 (Version 3)
Quarter: 2015Q4

REPORT INFORMATION
  Report Type: Spontaneous
  Country: DE (occurrence: DE)
  Receive Date: 20150814
  Receipt Date: 20151102
  Transmission Date: 20160304
  Serious: Yes (Other)
  Sender: FDA-Public Use
  Company Number: DE-JNJFOC-20150802661

PATIENT
  Age: 23 Year
  Sex: Male

DRUGS (6)
  1. STELARA [Suspect]
     Active Substance: USTEKINUMAB
     Indication: PSORIASIS
     Route: 058
     Dates: start: 201509
  2. CLOZAPINE. [Interacting]
     Active Substance: CLOZAPINE
     Indication: EPILEPSY
     Route: 065
  3. CLOZAPINE. [Interacting]
     Active Substance: CLOZAPINE
     Indication: SCHIZOPHRENIA, PARANOID TYPE
     Route: 065
  4. LAMOTRIGIN [Interacting]
     Active Substance: LAMOTRIGINE
     Indication: EPILEPSY
     Route: 065
  5. STELARA [Suspect]
     Active Substance: USTEKINUMAB
     Indication: PSORIASIS
     Route: 058
     Dates: start: 20150709
  6. LAMOTRIGIN [Interacting]
     Active Substance: LAMOTRIGINE
     Indication: SCHIZOPHRENIA, PARANOID TYPE
     Route: 065

REACTIONS (4)
  - Fatigue [Unknown]
  - Drug interaction [Unknown]
  - Schizophrenia, paranoid type [Unknown]
  - Epilepsy [Unknown]

NARRATIVE: CASE EVENT DATE: 2015
